FAERS Safety Report 12852424 (Version 1)
Quarter: 2016Q4

REPORT INFORMATION
  Report Type: Spontaneous
  Country: US (occurrence: US)
  Receive Date: 20161017
  Receipt Date: 20161017
  Transmission Date: 20170207
  Serious: Yes (Other)
  Sender: FDA-Public Use
  Company Number: None

PATIENT
  Age: 64 Year
  Sex: Female
  Weight: 101.24 kg

DRUGS (12)
  1. VIT. B-12 [Concomitant]
  2. VITAMIN D3 [Concomitant]
     Active Substance: CHOLECALCIFEROL
  3. FLAXSEED [Concomitant]
     Active Substance: FLAX SEED
  4. FISH OIL [Concomitant]
     Active Substance: FISH OIL
  5. L-THYROXINE (SYNTHROID) [Concomitant]
  6. AMLODIPINE BESYLATE. [Concomitant]
     Active Substance: AMLODIPINE BESYLATE
  7. TURMERIC [Concomitant]
     Active Substance: TURMERIC
  8. PREDNISDONE [Concomitant]
  9. ATORVASTATIN-GENERIC FOR LIPITOR TABS [Suspect]
     Active Substance: ATORVASTATIN
     Indication: BLOOD CHOLESTEROL INCREASED
     Dosage: QUANTITY 90 TABLETS
     Route: 048
     Dates: start: 20160303, end: 20160918
  10. METFORMIN HYDROCHLORIDE. [Concomitant]
     Active Substance: METFORMIN HYDROCHLORIDE
  11. LOSARTAN. [Concomitant]
     Active Substance: LOSARTAN
  12. MULTI VITAMIN-CENTRUM 50+ [Concomitant]

REACTIONS (1)
  - Pain in extremity [None]

NARRATIVE: CASE EVENT DATE: 20160918
